FAERS Safety Report 18259598 (Version 4)
Quarter: 2021Q2

REPORT INFORMATION
  Report Type: Spontaneous
  Country: US (occurrence: US)
  Receive Date: 20200911
  Receipt Date: 20210609
  Transmission Date: 20210717
  Serious: No
  Sender: FDA-Public Use
  Company Number: US-BIOMARINAP-US-2020-132073

PATIENT
  Age: 5 Year
  Sex: Male

DRUGS (2)
  1. ALDURAZYME [Suspect]
     Active Substance: LARONIDASE
     Indication: MUCOPOLYSACCHARIDOSIS I
     Dosage: 11.6 MILLIGRAM, QW
     Route: 042
     Dates: start: 20160204
  2. ALDURAZYME [Suspect]
     Active Substance: LARONIDASE
     Dosage: UNK,
     Route: 042

REACTIONS (4)
  - COVID-19 [Recovered/Resolved]
  - Malaise [Not Recovered/Not Resolved]
  - Off label use [Unknown]
  - Tachycardia [Not Recovered/Not Resolved]
